FAERS Safety Report 7604239-3 (Version None)
Quarter: 2011Q3

REPORT INFORMATION
  Report Type: 
  Country: None (occurrence: None)
  Receive Date: 20110712
  Receipt Date: 20110705
  Transmission Date: 20111222
  Serious: Yes (Death, Life-Threatening)
  Sender: FDA-Public Use
  Company Number: GB-ASTRAZENECA-2011SE31118

PATIENT
  Age: 55 Year
  Sex: Male

DRUGS (4)
  1. CLONAZEPAM [Suspect]
     Indication: MANIA
     Route: 048
     Dates: start: 20110208
  2. LORAZEPAM [Suspect]
     Indication: MANIA
     Route: 048
     Dates: start: 20110207
  3. SEROQUEL XR [Suspect]
     Indication: MANIA
     Route: 048
     Dates: start: 20110207
  4. SEROQUEL XR [Suspect]
     Route: 048
     Dates: start: 20110208

REACTIONS (3)
  - CARDIAC ARREST [None]
  - DEATH [None]
  - RESUSCITATION [None]
